FAERS Safety Report 21956061 (Version 1)
Quarter: 2023Q1

REPORT INFORMATION
  Report Type: Spontaneous
  Country: US (occurrence: None)
  Receive Date: 20230206
  Receipt Date: 20230206
  Transmission Date: 20230417
  Serious: Yes (Hospitalization, Other)
  Sender: FDA-Public Use
  Company Number: US-ROCHE-3273894

PATIENT
  Sex: Female

DRUGS (1)
  1. OCREVUS [Suspect]
     Active Substance: OCRELIZUMAB
     Indication: Multiple sclerosis
     Dosage: NO
     Route: 065

REACTIONS (5)
  - Dysarthria [Unknown]
  - Sensory loss [Unknown]
  - Pruritus [Unknown]
  - Paraesthesia [Unknown]
  - Multiple sclerosis relapse [Unknown]
